FAERS Safety Report 7557761-2 (Version None)
Quarter: 2011Q2

REPORT INFORMATION
  Report Type: 
  Country: None (occurrence: None)
  Receive Date: 20110620
  Receipt Date: 20110613
  Transmission Date: 20111010
  Serious: Yes (Disabling)
  Sender: FDA-Public Use
  Company Number: US-MERCK-1106USA01811

PATIENT
  Sex: Female

DRUGS (3)
  1. FOSAMAX [Suspect]
     Route: 048
  2. FOSAMAX PLUS D [Suspect]
     Route: 048
  3. FOSAMAX [Suspect]
     Route: 048

REACTIONS (2)
  - SKELETAL INJURY [None]
  - LOW TURNOVER OSTEOPATHY [None]
